FAERS Safety Report 8076819-5 (Version None)
Quarter: 2011Q4

REPORT INFORMATION
  Report Type: 
  Country: None (occurrence: None)
  Receive Date: 20111221
  Receipt Date: 20101228
  Transmission Date: 20120403
  Serious: Yes (Death)
  Sender: FDA-Public Use
  Company Number: PHHY2009US66706

PATIENT
  Sex: Male

DRUGS (4)
  1. LIBRIUM [Concomitant]
  2. NORVASC [Concomitant]
  3. EXJADE [Suspect]
     Dosage: 500 MG, QD, ORAL
     Route: 048
     Dates: start: 20091201
  4. PAXIL [Concomitant]

REACTIONS (2)
  - RASH [None]
  - NEOPLASM MALIGNANT [None]
